FAERS Safety Report 7777008-1 (Version None)
Quarter: 2011Q3

REPORT INFORMATION
  Report Type: 
  Country: None (occurrence: None)
  Receive Date: 20110926
  Receipt Date: 20110926
  Transmission Date: 20111222
  Serious: Yes (Hospitalization)
  Sender: FDA-Public Use
  Company Number: None

PATIENT
  Age: 71 Year
  Sex: Male

DRUGS (2)
  1. LISINOPRIL [Concomitant]
     Indication: HYPERTENSION
     Dosage: 40MG
     Route: 048
  2. GLYBURIDE [Suspect]
     Indication: DIABETES MELLITUS
     Dosage: 5MG
     Route: 048

REACTIONS (2)
  - HYPOTENSION [None]
  - HYPOGLYCAEMIA [None]
